FAERS Safety Report 9162396 (Version 3)
Quarter: 2013Q2

REPORT INFORMATION
  Report Type: Spontaneous
  Country: US (occurrence: US)
  Receive Date: 20130314
  Receipt Date: 20130418
  Transmission Date: 20140414
  Serious: No
  Sender: FDA-Public Use
  Company Number: US-PFIZER INC-2013081858

PATIENT
  Age: 70 Year
  Sex: Male

DRUGS (1)
  1. INLYTA [Suspect]
     Indication: RENAL CANCER
     Dosage: 5 MG, TAKE ONE TABLET, 2X/DAY
     Route: 048
     Dates: start: 20121118, end: 20130304

REACTIONS (3)
  - Disease progression [Unknown]
  - Renal cancer [Unknown]
  - Diarrhoea [Recovering/Resolving]
